FAERS Safety Report 14615374 (Version 3)
Quarter: 2018Q1

REPORT INFORMATION
  Report Type: Spontaneous
  Country: JP (occurrence: JP)
  Receive Date: 20180308
  Receipt Date: 20180330
  Transmission Date: 20180509
  Serious: Yes (Death, Hospitalization, Other)
  Sender: FDA-Public Use
  Company Number: JP-ASTRAZENECA-2017SF22468

PATIENT
  Age: 85 Year
  Sex: Male
  Weight: 48 kg

DRUGS (5)
  1. HEPARINOID [Concomitant]
     Active Substance: CHONDROITIN SULFATE (BOVINE)
     Indication: RASH
     Dosage: DOSE UNKNOWN, AS REQUIRED
     Route: 062
     Dates: start: 20170301
  2. TAGRISSO [Suspect]
     Active Substance: OSIMERTINIB
     Indication: NON-SMALL CELL LUNG CANCER
     Route: 048
     Dates: start: 20170921, end: 20171115
  3. NESINA [Concomitant]
     Active Substance: ALOGLIPTIN BENZOATE
     Indication: DIABETES MELLITUS
     Route: 048
  4. LOCOID [Concomitant]
     Active Substance: HYDROCORTISONE BUTYRATE
     Indication: RASH
     Dosage: DOSE UNKNOWN, AS REQUIRED
     Route: 062
     Dates: start: 20170301
  5. ECLAR:OINTMENT [Concomitant]
     Indication: RASH
     Dosage: DOSE UNKNOWN AS REQUIRED
     Route: 062
     Dates: start: 20170301

REACTIONS (4)
  - Rash [Not Recovered/Not Resolved]
  - Malignant neoplasm progression [Fatal]
  - Eosinophil count increased [Recovered/Resolved]
  - Pruritus generalised [Recovered/Resolved]

NARRATIVE: CASE EVENT DATE: 2017
